FAERS Safety Report 10024880 (Version 1)
Quarter: 2014Q1

REPORT INFORMATION
  Report Type: Spontaneous
  Country: US (occurrence: US)
  Receive Date: 20140320
  Receipt Date: 20140320
  Transmission Date: 20141002
  Serious: Yes (Hospitalization)
  Sender: FDA-Public Use
  Company Number: US-BAXTER-2014BAX013636

PATIENT
  Age: 80 Year
  Sex: Male

DRUGS (1)
  1. DIANEAL LOW CALCIUM [Suspect]
     Indication: RENAL FAILURE CHRONIC
     Route: 033
     Dates: start: 201109

REACTIONS (4)
  - Myocardial infarction [Recovering/Resolving]
  - Anaemia [Recovered/Resolved]
  - Hypotension [Recovered/Resolved]
  - Fluid overload [Recovered/Resolved]
